FAERS Safety Report 4925874-7 (Version None)
Quarter: 2006Q1

REPORT INFORMATION
  Report Type: 
  Country: None (occurrence: None)
  Receive Date: 20060228
  Receipt Date: 20050406
  Transmission Date: 20060701
  Serious: No
  Sender: FDA-Public Use
  Company Number: US-GLAXOSMITHKLINE-A0553037A

PATIENT
  Age: 82 Year
  Sex: Female

DRUGS (11)
  1. LAMOTRIGINE [Suspect]
     Indication: BIPOLAR DISORDER
     Dosage: 150MG PER DAY
     Route: 048
  2. DIGOXIN [Concomitant]
  3. LASIX [Concomitant]
  4. NITROGLYCERIN [Concomitant]
     Route: 065
  5. LEXAPRO [Concomitant]
  6. NORVASC [Concomitant]
  7. COREG [Concomitant]
  8. ADVAIR DISKUS 100/50 [Concomitant]
  9. COUMADIN [Concomitant]
  10. PROTONIX [Concomitant]
  11. LORAZEPAM [Concomitant]
     Route: 065

REACTIONS (1)
  - RASH VESICULAR [None]
